FAERS Safety Report 14659005 (Version 1)
Quarter: 2018Q1

REPORT INFORMATION
  Report Type: Spontaneous
  Country: US (occurrence: US)
  Receive Date: 20180317
  Receipt Date: 20180317
  Transmission Date: 20180509
  Serious: Yes (Hospitalization)
  Sender: FDA-Public Use
  Company Number: None

PATIENT
  Age: 73 Year
  Sex: Female
  Weight: 141.7 kg

DRUGS (4)
  1. VINBLASTINE [Suspect]
     Active Substance: VINBLASTINE
  2. CISPLATIN. [Suspect]
     Active Substance: CISPLATIN
  3. METHOTREXATE. [Suspect]
     Active Substance: METHOTREXATE
     Indication: BLADDER CANCER
     Dosage: MVAC Q WEEKS 2 3 IV
     Route: 042
     Dates: start: 20180104, end: 20180201
  4. DOXORUBICIN [Suspect]
     Active Substance: DOXORUBICIN

REACTIONS (2)
  - Pyrexia [None]
  - Meningitis [None]

NARRATIVE: CASE EVENT DATE: 20180308
